FAERS Safety Report 4358966-4 (Version None)
Quarter: 2004Q2

REPORT INFORMATION
  Report Type: 
  Country: None (occurrence: None)
  Receive Date: 20040517
  Receipt Date: 20021030
  Transmission Date: 20050107
  Serious: Yes (Hospitalization)
  Sender: FDA-Public Use
  Company Number: FR-MERCK-0210FRA00080

PATIENT
  Age: 83 Year
  Sex: Male

DRUGS (3)
  1. ASPIRIN LYSINE [Concomitant]
     Route: 048
  2. VASOTEC [Concomitant]
     Indication: HYPERTENSION
     Route: 048
  3. VIOXX [Suspect]
     Indication: NECK PAIN
     Route: 048
     Dates: start: 20020907, end: 20020914

REACTIONS (3)
  - ANAEMIA [None]
  - GASTRIC ULCER [None]
  - MELAENA [None]
